FAERS Safety Report 8571612 (Version 3)
Quarter: 2013Q3

REPORT INFORMATION
  Report Type: Spontaneous
  Country: DE (occurrence: DE)
  Receive Date: 20120521
  Receipt Date: 20130729
  Transmission Date: 20140515
  Serious: Yes (Hospitalization)
  Sender: FDA-Public Use
  Company Number: DE-GLAXOSMITHKLINE-D0075608A

PATIENT
  Sex: 0

DRUGS (6)
  1. REQUIP-MODUTAB [Suspect]
     Indication: PARKINSON^S DISEASE
     Dosage: 8MG PER DAY
     Route: 048
  2. SEROQUEL [Suspect]
     Indication: BIPOLAR DISORDER
     Dosage: 200MG PER DAY
     Route: 065
     Dates: start: 201203
  3. STALEVO [Suspect]
     Dosage: 100MG FIVE TIMES PER DAY
     Route: 065
  4. MADOPAR DEPOT [Suspect]
     Route: 065
  5. AZILECT [Suspect]
     Dosage: 1MG PER DAY
     Route: 065
  6. L-THYROXIN [Concomitant]
     Dosage: 125MG PER DAY
     Route: 065

REACTIONS (5)
  - Parkinson^s disease [Unknown]
  - Gait disturbance [Unknown]
  - Drug interaction [Unknown]
  - Paraesthesia [Unknown]
  - Therapeutic response unexpected [Unknown]
